FAERS Safety Report 18379838 (Version 2)
Quarter: 2020Q4

REPORT INFORMATION
  Report Type: Spontaneous
  Country: US (occurrence: US)
  Receive Date: 20201013
  Receipt Date: 20201023
  Transmission Date: 20210114
  Serious: Yes (Hospitalization)
  Sender: FDA-Public Use
  Company Number: US-ALLERGAN-2038628US

PATIENT
  Sex: Female
  Weight: 58.97 kg

DRUGS (1)
  1. SUCRALFATE TABLET [Suspect]
     Active Substance: SUCRALFATE
     Indication: GASTROINTESTINAL DISORDER
     Dosage: 1 G, TID
     Route: 048

REACTIONS (3)
  - Product use complaint [Unknown]
  - Cardiac operation [Recovered/Resolved]
  - Hypertension [Not Recovered/Not Resolved]

NARRATIVE: CASE EVENT DATE: 2016
